FAERS Safety Report 14317673 (Version 1)
Quarter: 2017Q4

REPORT INFORMATION
  Report Type: Report from Study
  Country: None (occurrence: BR)
  Receive Date: 20171222
  Receipt Date: 20171222
  Transmission Date: 20180321
  Serious: Yes (Hospitalization, Other)
  Sender: FDA-Public Use
  Company Number: BR-ABBVIE-17K-020-2056236-00

PATIENT
  Sex: Female

DRUGS (2)
  1. HUMIRA [Suspect]
     Active Substance: ADALIMUMAB
     Route: 058
     Dates: start: 201709
  2. HUMIRA [Suspect]
     Active Substance: ADALIMUMAB
     Indication: PSORIATIC ARTHROPATHY
     Route: 058
     Dates: start: 20140818, end: 201705

REACTIONS (6)
  - Medical device implantation [Unknown]
  - Hospitalisation [Unknown]
  - Osteoarthritis [Unknown]
  - Localised infection [Unknown]
  - Memory impairment [Unknown]
  - Rheumatoid arthritis [Unknown]
